FAERS Safety Report 21138624 (Version 2)
Quarter: 2023Q1

REPORT INFORMATION
  Report Type: Spontaneous
  Country: US (occurrence: US)
  Receive Date: 20220727
  Receipt Date: 20230113
  Transmission Date: 20230418
  Serious: No
  Sender: FDA-Public Use
  Company Number: US-RECRO GAINESVILLE LLC-REPH-2022-000002

PATIENT
  Sex: Female

DRUGS (4)
  1. VERAPAMIL HYDROCHLORIDE [Suspect]
     Active Substance: VERAPAMIL HYDROCHLORIDE
     Indication: Migraine
     Dosage: 120 MILLIGRAM (CAPSULE), QD
     Route: 048
     Dates: start: 2021
  2. VERAPAMIL HYDROCHLORIDE [Suspect]
     Active Substance: VERAPAMIL HYDROCHLORIDE
     Indication: Migraine
     Dosage: 120 MILLIGRAM (CAPSULE)
     Route: 048
  3. ESTRADIOL [Concomitant]
     Active Substance: ESTRADIOL
     Dosage: 0.5 MILLIGRAM
  4. ESTROGENS [Concomitant]
     Active Substance: ESTROGENS

REACTIONS (7)
  - Peripheral coldness [Unknown]
  - Abdominal discomfort [Unknown]
  - Off label use [Unknown]
  - Headache [Unknown]
  - Palpitations [Unknown]
  - Sleep disorder [Unknown]
  - Headache [Unknown]
